FAERS Safety Report 9308948 (Version 1)
Quarter: 2013Q2

REPORT INFORMATION
  Report Type: Spontaneous
  Country: BR (occurrence: BR)
  Receive Date: 20130524
  Receipt Date: 20130524
  Transmission Date: 20140414
  Serious: Yes (Other)
  Sender: FDA-Public Use
  Company Number: BR-ASTRAZENECA-2013SE33046

PATIENT
  Age: 70 Year
  Sex: Female
  Weight: 68 kg

DRUGS (12)
  1. FASLODEX [Suspect]
     Indication: BREAST CANCER FEMALE
     Dosage: 250 MG / 5 ML
     Route: 030
     Dates: start: 201207
  2. ANASTROZOLE [Suspect]
     Indication: BREAST CANCER FEMALE
     Dates: start: 201107, end: 201207
  3. ATENOLOL [Suspect]
  4. OMEPRAZOL [Suspect]
  5. TAMOXIFEN [Suspect]
     Indication: BREAST CANCER FEMALE
     Dates: start: 1999, end: 2004
  6. XELODA [Suspect]
     Indication: METASTASES TO LUNG
     Dates: start: 2004
  7. DIOVAN [Concomitant]
     Dosage: 160/5 MG
  8. CALCIUM DEX [Concomitant]
     Dosage: 500 MG
  9. ADDERA D3 [Concomitant]
  10. CEBION ZINC [Concomitant]
  11. STILNOX [Concomitant]
  12. AROMASIM [Concomitant]
     Indication: METASTASES TO LUNG
     Dates: start: 2004

REACTIONS (7)
  - Pulmonary mass [Not Recovered/Not Resolved]
  - Metastases to lung [Unknown]
  - Hypotonia [Not Recovered/Not Resolved]
  - Carbohydrate antigen 15-3 increased [Not Recovered/Not Resolved]
  - Skin disorder [Not Recovered/Not Resolved]
  - Skin exfoliation [Recovered/Resolved]
  - Depressed mood [Not Recovered/Not Resolved]
